FAERS Safety Report 4599042-5 (Version None)
Quarter: 2005Q1

REPORT INFORMATION
  Report Type: 
  Country: None (occurrence: None)
  Receive Date: 20050304
  Receipt Date: 20041202
  Transmission Date: 20050727
  Serious: Yes (Life-Threatening, Hospitalization)
  Sender: FDA-Public Use
  Company Number: US-MERCK-0412USA00447

PATIENT
  Age: 57 Year
  Sex: Female

DRUGS (14)
  1. VIOXX [Suspect]
     Indication: BACK PAIN
     Route: 048
     Dates: start: 20040205, end: 20040208
  2. DETROL LA [Concomitant]
     Route: 065
  3. ASPIRIN [Concomitant]
     Route: 065
  4. PROZAC [Concomitant]
     Route: 065
  5. ZONEGRAN [Concomitant]
     Route: 065
  6. LIMBITROL TABLETS [Concomitant]
     Route: 065
  7. PROTONIX [Concomitant]
     Route: 065
  8. [THERAPY UNSPECIFIED] [Concomitant]
     Route: 065
  9. VICODIN [Concomitant]
     Indication: BACK PAIN
     Route: 065
  10. BENADRYL [Concomitant]
     Route: 065
  11. PHENERGAN [Concomitant]
     Route: 065
  12. LOMOTIL [Concomitant]
     Route: 065
  13. OXYCONTIN [Concomitant]
     Route: 065
  14. MIDRIN [Concomitant]
     Route: 065

REACTIONS (5)
  - BRONCHITIS [None]
  - CARDIAC DISORDER [None]
  - DIZZINESS [None]
  - DYSPNOEA [None]
  - PALPITATIONS [None]
